FAERS Safety Report 25732411 (Version 1)
Quarter: 2025Q3

REPORT INFORMATION
  Report Type: Spontaneous
  Country: CA (occurrence: CA)
  Receive Date: 20250827
  Receipt Date: 20250827
  Transmission Date: 20251021
  Serious: Yes (Other)
  Sender: TEVA
  Company Number: CA-TEVA-VS-3365861

PATIENT
  Age: 49 Year
  Sex: Male

DRUGS (1)
  1. METHOTREXATE SODIUM [Suspect]
     Active Substance: METHOTREXATE SODIUM
     Indication: Psoriatic arthropathy
     Route: 058

REACTIONS (6)
  - Hepatitis [Unknown]
  - Drug intolerance [Unknown]
  - Discomfort [Unknown]
  - Off label use [Unknown]
  - Off label use [Unknown]
  - Off label use [Unknown]
